FAERS Safety Report 10690586 (Version 1)
Quarter: 2015Q1

REPORT INFORMATION
  Report Type: Spontaneous
  Country: PL (occurrence: None)
  Receive Date: 20150102
  Receipt Date: 20150102
  Transmission Date: 20150720
  Serious: Yes (Hospitalization, Other)
  Sender: FDA-Public Use
  Company Number: PL-ZYDUS-006208

PATIENT
  Age: 52 Year
  Sex: Male

DRUGS (2)
  1. PEGINTERFERON ALFA-2A (PEGINTERFERON ALFA-2A) [Suspect]
     Active Substance: PEGINTERFERON ALFA-2A
     Indication: HEPATIC CIRRHOSIS
     Route: 058
     Dates: start: 201110
  2. RIBAVIRIN (RIBAVIRIN) [Suspect]
     Active Substance: RIBAVIRIN
     Indication: HEPATIC CIRRHOSIS
     Dosage: 24 HOURS
     Route: 048
     Dates: start: 201110, end: 201110

REACTIONS (2)
  - Influenza like illness [None]
  - Drug reaction with eosinophilia and systemic symptoms [None]
